FAERS Safety Report 17999476 (Version 1)
Quarter: 2020Q3

REPORT INFORMATION
  Report Type: Spontaneous
  Country: FR (occurrence: FR)
  Receive Date: 20200709
  Receipt Date: 20200709
  Transmission Date: 20201103
  Serious: Yes (Other)
  Sender: FDA-Public Use
  Company Number: FR-ASTRAZENECA-2020SE85695

PATIENT
  Age: 46 Year
  Sex: Male

DRUGS (11)
  1. ASPEGIC [AMINOACETIC ACID\ACETYLSALICYLATE LYSINE] [Suspect]
     Active Substance: ASPIRIN DL-LYSINE\GLYCINE
     Indication: PRODUCT USED FOR UNKNOWN INDICATION
     Route: 048
  2. ATORVASTATINE [Concomitant]
     Active Substance: ATORVASTATIN
     Route: 048
  3. ALLOPURINOL. [Suspect]
     Active Substance: ALLOPURINOL
     Indication: PRODUCT USED FOR UNKNOWN INDICATION
     Route: 048
  4. NEORAL [Suspect]
     Active Substance: CYCLOSPORINE
     Indication: PROPHYLAXIS AGAINST TRANSPLANT REJECTION
     Route: 048
  5. OMEPRAZOLE. [Suspect]
     Active Substance: OMEPRAZOLE
     Indication: PRODUCT USED FOR UNKNOWN INDICATION
     Route: 048
  6. COTRIATEC [Suspect]
     Active Substance: HYDROCHLOROTHIAZIDE\RAMIPRIL
     Indication: PRODUCT USED FOR UNKNOWN INDICATION
     Dosage: 5/12.5 MG/J
     Route: 048
  7. ARANESP [Suspect]
     Active Substance: DARBEPOETIN ALFA
     Indication: ANAEMIA
     Dosage: UNFILLED150.0UG/INHAL UNKNOWN
     Route: 058
  8. URAPIDIL [Concomitant]
     Active Substance: URAPIDIL
     Route: 048
  9. CELECTOL [Concomitant]
     Active Substance: CELIPROLOL HYDROCHLORIDE
     Route: 048
  10. KAYEXALATE [Concomitant]
     Active Substance: SODIUM POLYSTYRENE SULFONATE
     Route: 048
  11. PREDNISONE. [Concomitant]
     Active Substance: PREDNISONE
     Route: 048

REACTIONS (1)
  - Aplasia pure red cell [Recovering/Resolving]

NARRATIVE: CASE EVENT DATE: 2018
